FAERS Safety Report 21266564 (Version 1)
Quarter: 2022Q3

REPORT INFORMATION
  Report Type: Spontaneous
  Country: IT (occurrence: IT)
  Receive Date: 20220829
  Receipt Date: 20220829
  Transmission Date: 20221026
  Serious: Yes (Other)
  Sender: FDA-Public Use
  Company Number: IT-SAMSUNG BIOEPIS-SB-2022-20156

PATIENT
  Age: 7 Year
  Sex: Male

DRUGS (10)
  1. INFLIXIMAB [Suspect]
     Active Substance: INFLIXIMAB
     Indication: Scleritis
     Route: 041
  2. INFLIXIMAB [Suspect]
     Active Substance: INFLIXIMAB
     Route: 041
  3. AZATHIOPRINE [Concomitant]
     Active Substance: AZATHIOPRINE
     Indication: Scleritis
  4. METHOTREXATE [Concomitant]
     Active Substance: METHOTREXATE
     Indication: Scleritis
  5. PREDNISONE [Concomitant]
     Active Substance: PREDNISONE
     Indication: Scleritis
     Dosage: AT BASALINE
  6. PREDNISONE [Concomitant]
     Active Substance: PREDNISONE
     Dosage: AFTER 6 MONTHS
  7. PREDNISONE [Concomitant]
     Active Substance: PREDNISONE
     Route: 048
  8. PREDNISONE [Concomitant]
     Active Substance: PREDNISONE
     Dosage: AFTER 3 MONTHS
  9. PREDNISONE [Concomitant]
     Active Substance: PREDNISONE
     Dosage: AFTER 12 MONTHS
  10. PREDNISONE [Concomitant]
     Active Substance: PREDNISONE
     Dosage: AT THE LATEST ASSESSMENT

REACTIONS (2)
  - Scleritis [Recovered/Resolved]
  - Off label use [Unknown]
